FAERS Safety Report 5589696-9 (Version None)
Quarter: 2008Q1

REPORT INFORMATION
  Report Type: 
  Country: None (occurrence: None)
  Receive Date: 20080114
  Receipt Date: 20080107
  Transmission Date: 20080703
  Serious: Yes (Hospitalization)
  Sender: FDA-Public Use
  Company Number: B0494695A

PATIENT
  Age: 39 Year
  Sex: Male

DRUGS (8)
  1. LAMICTAL [Suspect]
     Indication: EPILEPSY
     Route: 048
     Dates: start: 20061215
  2. DEPAKENE [Concomitant]
     Route: 048
  3. TEGRETOL [Concomitant]
     Route: 048
  4. HYDANTOL [Concomitant]
     Route: 048
  5. PHENOBAL [Concomitant]
     Route: 065
  6. SODIUM BROMIDE [Concomitant]
     Route: 048
  7. MAGLAX [Concomitant]
     Route: 048
  8. COLONEL [Concomitant]
     Route: 048

REACTIONS (2)
  - CONVULSION [None]
  - HYPOTHERMIA [None]
